FAERS Safety Report 10730129 (Version 4)
Quarter: 2015Q1

REPORT INFORMATION
  Report Type: Spontaneous
  Country: FR (occurrence: FR)
  Receive Date: 20150122
  Receipt Date: 20150305
  Transmission Date: 20150721
  Serious: Yes (Hospitalization)
  Sender: FDA-Public Use
  Company Number: PHHY2015FR005427

PATIENT
  Age: 56 Year
  Sex: Male

DRUGS (35)
  1. METHOTREXATE [Suspect]
     Active Substance: METHOTREXATE
     Indication: CHRONIC MYELOID LEUKAEMIA
     Dosage: 15 MG, SINGLE
     Route: 037
     Dates: start: 20141121, end: 20141121
  2. METHOTREXATE [Suspect]
     Active Substance: METHOTREXATE
     Dosage: 24 MG, FOR TWO DAYS
     Dates: start: 20141212
  3. DEPO-MEDROL [Suspect]
     Active Substance: METHYLPREDNISOLONE ACETATE
     Dosage: 40 MG, SINGLE
     Route: 037
     Dates: start: 20141123, end: 20141123
  4. TAZOCILLINE [Suspect]
     Active Substance: PIPERACILLIN SODIUM\TAZOBACTAM SODIUM
     Indication: PRODUCT USED FOR UNKNOWN INDICATION
     Dosage: 4 G, QID
     Route: 048
     Dates: start: 20141106, end: 20141126
  5. MITOXANTRONE [Concomitant]
     Active Substance: MITOXANTRONE HYDROCHLORIDE
     Indication: PRODUCT USED FOR UNKNOWN INDICATION
     Dosage: 24 MG, FOR 2 DAYS
     Route: 065
     Dates: start: 20141212
  6. CYTARABINE. [Suspect]
     Active Substance: CYTARABINE
     Indication: CHRONIC MYELOID LEUKAEMIA
     Dosage: 400 MG, QD
     Route: 042
     Dates: start: 20141105, end: 20141111
  7. CYTARABINE. [Suspect]
     Active Substance: CYTARABINE
     Dosage: 40 MG, SINGLE
     Route: 037
     Dates: start: 20141123, end: 20141123
  8. DEPO-MEDROL [Suspect]
     Active Substance: METHYLPREDNISOLONE ACETATE
     Indication: CHRONIC MYELOID LEUKAEMIA
     Dosage: 40 MG, SINGLE
     Route: 037
     Dates: start: 20141121, end: 20141121
  9. ZOPHREN [Suspect]
     Active Substance: ONDANSETRON
     Indication: PRODUCT USED FOR UNKNOWN INDICATION
     Dosage: 8 MG/4 ML, QD
     Route: 042
     Dates: start: 20141105, end: 201412
  10. TOPALGIC LP [Suspect]
     Active Substance: TRAMADOL
     Indication: PRODUCT USED FOR UNKNOWN INDICATION
     Dosage: 50 MG, QID
     Route: 048
     Dates: start: 201411, end: 201412
  11. TASIGNA [Suspect]
     Active Substance: NILOTINIB
     Indication: CHRONIC MYELOID LEUKAEMIA
     Dosage: 300 MG, BID
     Route: 048
     Dates: start: 201404, end: 20141030
  12. METHOTREXATE [Suspect]
     Active Substance: METHOTREXATE
     Dosage: 15 MG, SINGLE
     Route: 037
     Dates: start: 20141126, end: 20141126
  13. CYTARABINE. [Suspect]
     Active Substance: CYTARABINE
     Dosage: 40 MG, SINGLE
     Route: 037
     Dates: start: 20141209, end: 20141209
  14. CYTARABINE. [Suspect]
     Active Substance: CYTARABINE
     Dosage: 2000 MG, BID, FOR FIVE DAYS
     Route: 042
     Dates: start: 20141212
  15. ACICLOVIR [Suspect]
     Active Substance: ACYCLOVIR
     Indication: PRODUCT USED FOR UNKNOWN INDICATION
     Dosage: 250 MG, TID
     Route: 042
     Dates: start: 20141126, end: 20141207
  16. FLAGYL [Suspect]
     Active Substance: METRONIDAZOLE\METRONIDAZOLE HYDROCHLORIDE
     Indication: PRODUCT USED FOR UNKNOWN INDICATION
     Dosage: 500 MG, TID
     Route: 048
     Dates: start: 20141125, end: 201412
  17. DEPO-MEDROL [Suspect]
     Active Substance: METHYLPREDNISOLONE ACETATE
     Dosage: 40 MG, SINGLE
     Route: 037
     Dates: start: 20141209, end: 20141209
  18. AMBISOME [Suspect]
     Active Substance: AMPHOTERICIN B
     Indication: PRODUCT USED FOR UNKNOWN INDICATION
     Dosage: 270 MG, QD
     Route: 042
     Dates: start: 20141121, end: 201412
  19. PRIMPERAN [Concomitant]
     Active Substance: METOCLOPRAMIDE HYDROCHLORIDE
     Indication: PRODUCT USED FOR UNKNOWN INDICATION
     Dosage: 30 MG, QD
     Route: 042
     Dates: start: 20141121
  20. TRANXENE T-TAB [Concomitant]
     Active Substance: CLORAZEPATE DIPOTASSIUM
     Indication: PRODUCT USED FOR UNKNOWN INDICATION
     Dosage: 20 MG/2ML, QD
     Route: 042
     Dates: start: 20141126
  21. EUPANTOL [Suspect]
     Active Substance: PANTOPRAZOLE SODIUM
     Indication: PRODUCT USED FOR UNKNOWN INDICATION
     Dosage: 40 MG, QD
     Route: 042
     Dates: start: 20141127, end: 20141207
  22. ARACYTINE [Suspect]
     Active Substance: CYTARABINE
     Indication: PRODUCT USED FOR UNKNOWN INDICATION
     Dosage: 40 MG, QD
     Route: 037
     Dates: start: 20141121, end: 20141212
  23. POLARAMINE [Suspect]
     Active Substance: DEXCHLORPHENIRAMINE MALEATE
     Indication: PRODUCT USED FOR UNKNOWN INDICATION
     Dosage: 5 MG/1 ML
     Route: 042
     Dates: start: 20141121, end: 201412
  24. SPASFON [Concomitant]
     Active Substance: PHLOROGLUCINOL
     Indication: PRODUCT USED FOR UNKNOWN INDICATION
     Dosage: 3 DF, QD
     Route: 042
     Dates: start: 20141126
  25. CYTARABINE. [Suspect]
     Active Substance: CYTARABINE
     Dosage: 40 MG, SINGLE
     Route: 037
     Dates: start: 20141126, end: 20141126
  26. CERUBIDINE [Suspect]
     Active Substance: DAUNORUBICIN HYDROCHLORIDE
     Dosage: 120 MG, QD
     Route: 042
     Dates: start: 20141107, end: 20141108
  27. ACUPAN [Concomitant]
     Active Substance: NEFOPAM HYDROCHLORIDE
     Indication: PRODUCT USED FOR UNKNOWN INDICATION
     Dosage: 20 MG, TID
     Route: 002
     Dates: start: 20141121
  28. METHOTREXATE [Suspect]
     Active Substance: METHOTREXATE
     Dosage: 15 MG, SINGLE
     Route: 037
     Dates: start: 20141209, end: 20141209
  29. CYTARABINE. [Suspect]
     Active Substance: CYTARABINE
     Dosage: 40 MG, SINGLE
     Route: 037
     Dates: start: 20141121, end: 20141121
  30. CERUBIDINE [Suspect]
     Active Substance: DAUNORUBICIN HYDROCHLORIDE
     Indication: CHRONIC MYELOID LEUKAEMIA
     Dosage: 60 MG, QD
     Route: 042
     Dates: start: 20141105, end: 20141106
  31. TIENAM [Suspect]
     Active Substance: CILASTATIN SODIUM\IMIPENEM
     Indication: PRODUCT USED FOR UNKNOWN INDICATION
     Dosage: 1 G, TID
     Route: 042
     Dates: start: 20141126, end: 201412
  32. ZYVOXID [Suspect]
     Active Substance: LINEZOLID
     Indication: PRODUCT USED FOR UNKNOWN INDICATION
     Dosage: 600 MG, BID
     Route: 048
     Dates: start: 20141110, end: 20141124
  33. VANCOMYCIN [Suspect]
     Active Substance: VANCOMYCIN
     Indication: PRODUCT USED FOR UNKNOWN INDICATION
     Dosage: 2500 MG, QD
     Route: 042
     Dates: start: 20141124, end: 20141130
  34. METHOTREXATE [Suspect]
     Active Substance: METHOTREXATE
     Dosage: 15 MG, SINGLE
     Route: 037
     Dates: start: 20141123, end: 20141123
  35. DEPO-MEDROL [Suspect]
     Active Substance: METHYLPREDNISOLONE ACETATE
     Dosage: 40 MG, SINGLE
     Route: 037
     Dates: start: 20141126, end: 20141126

REACTIONS (1)
  - Venous thrombosis limb [Recovering/Resolving]

NARRATIVE: CASE EVENT DATE: 20141201
